FAERS Safety Report 13347571 (Version 1)
Quarter: 2017Q1

REPORT INFORMATION
  Report Type: Spontaneous
  Country: BR (occurrence: BR)
  Receive Date: 20170317
  Receipt Date: 20170317
  Transmission Date: 20170428
  Serious: Yes (Other)
  Sender: FDA-Public Use
  Company Number: BR-GE HEALTHCARE LIFE SCIENCES-2017CSU000273

PATIENT

DRUGS (2)
  1. OMNIPAQUE [Suspect]
     Active Substance: IOHEXOL
     Indication: ABDOMINAL PAIN
     Dosage: 100 ML, SINGLE
     Route: 042
     Dates: start: 20170215, end: 20170215
  2. PREDNISONE. [Concomitant]
     Active Substance: PREDNISONE
     Indication: PRODUCT USED FOR UNKNOWN INDICATION

REACTIONS (3)
  - Neck pain [Recovered/Resolved]
  - Generalised tonic-clonic seizure [Recovered/Resolved]
  - Chest pain [Recovered/Resolved]

NARRATIVE: CASE EVENT DATE: 20170215
